FAERS Safety Report 20012925 (Version 1)
Quarter: 2021Q4

REPORT INFORMATION
  Report Type: Spontaneous
  Country: DE (occurrence: DE)
  Receive Date: 20211029
  Receipt Date: 20211029
  Transmission Date: 20220303
  Serious: Yes (Other)
  Sender: FDA-Public Use
  Company Number: DE-GLENMARK PHARMACEUTICALS-2021GMK066785

PATIENT
  Age: 39 Year
  Sex: Female

DRUGS (5)
  1. PIOGLITAZONE [Suspect]
     Active Substance: PIOGLITAZONE
     Indication: Hodgkin^s disease refractory
     Dosage: 45 MILLIGRAM, QD (P.O)
     Route: 048
  2. ETORICOXIB [Suspect]
     Active Substance: ETORICOXIB
     Indication: Hodgkin^s disease refractory
     Dosage: 60 MILLIGRAM, QD (P.O)
     Route: 048
  3. DEXAMETHASONE [Suspect]
     Active Substance: DEXAMETHASONE
     Indication: Hodgkin^s disease refractory
     Dosage: 0.5 MILLIGRAM, QD (P.O)
     Route: 048
  4. EVEROLIMUS [Suspect]
     Active Substance: EVEROLIMUS
     Indication: Hodgkin^s disease refractory
     Dosage: 15 MILLIGRAM, QD (P.O), DAILY TO ACHIEVE SERUM TROUGH EVELS OF 15 NG/ML
     Route: 048
  5. TREOSULFAN [Suspect]
     Active Substance: TREOSULFAN
     Indication: Hodgkin^s disease refractory
     Dosage: 250 MILLIGRAM, QD (P.O)
     Route: 048

REACTIONS (1)
  - Graft versus host disease [Unknown]
